FAERS Safety Report 17755561 (Version 4)
Quarter: 2020Q4

REPORT INFORMATION
  Report Type: Spontaneous
  Country: US (occurrence: US)
  Receive Date: 20200507
  Receipt Date: 20201116
  Transmission Date: 20210113
  Serious: Yes (Hospitalization, Other)
  Sender: FDA-Public Use
  Company Number: US-PFIZER INC-2020182996

PATIENT
  Age: 68 Year
  Sex: Female
  Weight: 49.9 kg

DRUGS (2)
  1. XELJANZ XR [Suspect]
     Active Substance: TOFACITINIB CITRATE
     Indication: RHEUMATOID ARTHRITIS
     Dosage: 11 MG, DAILY
     Route: 048
     Dates: start: 20170904
  2. XELJANZ XR [Suspect]
     Active Substance: TOFACITINIB CITRATE
     Dosage: 11 MG, 1X/DAY
     Route: 048
     Dates: start: 2017, end: 20201005

REACTIONS (7)
  - Thrombosis [Unknown]
  - Headache [Unknown]
  - Depressed mood [Unknown]
  - Neck pain [Unknown]
  - Feeling abnormal [Unknown]
  - Deep vein thrombosis [Recovering/Resolving]
  - Jugular vein thrombosis [Recovering/Resolving]

NARRATIVE: CASE EVENT DATE: 202010
